FAERS Safety Report 8304258-8 (Version None)
Quarter: 2012Q2

REPORT INFORMATION
  Report Type: 
  Country: None (occurrence: None)
  Receive Date: 20120423
  Receipt Date: 20120416
  Transmission Date: 20120825
  Serious: Yes (Other)
  Sender: FDA-Public Use
  Company Number: PHEH2012US007375

PATIENT
  Sex: Female

DRUGS (1)
  1. GILENYA [Suspect]
     Indication: MULTIPLE SCLEROSIS
     Dosage: 0.5 MG, QD
     Route: 048
     Dates: start: 20120326, end: 20120412

REACTIONS (7)
  - MACULAR DEGENERATION [None]
  - VISUAL ACUITY REDUCED [None]
  - NECK PAIN [None]
  - HEADACHE [None]
  - MACULAR OEDEMA [None]
  - BACK PAIN [None]
  - PAIN [None]
